FAERS Safety Report 9443085 (Version 2)
Quarter: 2013Q3

REPORT INFORMATION
  Report Type: Spontaneous
  Country: BE (occurrence: BE)
  Receive Date: 20130806
  Receipt Date: 20130809
  Transmission Date: 20140515
  Serious: Yes (Death)
  Sender: FDA-Public Use
  Company Number: BE-ASTRAZENECA-2013SE60861

PATIENT
  Sex: Female

DRUGS (1)
  1. BRILIQUE [Suspect]
     Route: 048
     Dates: start: 20130627

REACTIONS (1)
  - Death [Fatal]
